FAERS Safety Report 8664417 (Version 2)
Quarter: 2012Q4

REPORT INFORMATION
  Report Type: 
  Country: DE (occurrence: JP)
  Receive Date: 20120713
  Receipt Date: 20121205
  Transmission Date: 20130627
  Serious: Yes (Death, Other)
  Sender: FDA-Public Use
  Company Number: JP-SPECTRUM PHARMACEUTICALS, INC.-11-Z-JP-00129

PATIENT

DRUGS (2)
  1. ZEVALIN [Suspect]
     Indication: LYMPHOMA
     Dosage: UNK, single
     Route: 042
     Dates: start: 20101214, end: 20101214
  2. ZEVALIN [Suspect]
     Dosage: UNK, single
     Route: 042
     Dates: start: 20101207, end: 20101207

REACTIONS (4)
  - Pancreatic carcinoma [Fatal]
  - Platelet count decreased [Recovered/Resolved]
  - Neutropenia [Recovered/Resolved]
  - White blood cell count decreased [Recovered/Resolved]
